FAERS Safety Report 6149575-5 (Version None)
Quarter: 2009Q2

REPORT INFORMATION
  Report Type: 
  Country: None (occurrence: None)
  Receive Date: 20090409
  Receipt Date: 20070516
  Transmission Date: 20091009
  Serious: Yes (Hospitalization)
  Sender: FDA-Public Use
  Company Number: US-ASTRAZENECA-2006UW24240

PATIENT
  Age: 17598 Day
  Sex: Female
  Weight: 119.3 kg

DRUGS (23)
  1. SEROQUEL [Suspect]
     Indication: SCHIZOPHRENIA
     Route: 048
     Dates: start: 20030101
  2. SEROQUEL [Suspect]
     Dosage: 100-800 MG
     Route: 048
     Dates: start: 19980622
  3. RISPERDAL [Suspect]
     Route: 048
     Dates: start: 20030101, end: 20050101
  4. RISPERDAL [Suspect]
     Dosage: 1-8 MG
     Route: 048
     Dates: start: 20031008, end: 20050106
  5. ABILIFY [Concomitant]
     Dates: start: 20030101, end: 20040101
  6. CLOZARIL [Concomitant]
     Dates: end: 20040101
  7. HALDOL [Concomitant]
     Dosage: 5 MG-100 MG
     Dates: start: 20000101, end: 20040101
  8. ZYPREXA [Concomitant]
     Dosage: 15 MG-30 MG
     Dates: start: 20030101, end: 20040101
  9. KLONOPIN [Concomitant]
     Dates: start: 19901101
  10. ATIVAN [Concomitant]
     Dates: start: 19901101
  11. TYLENOL [Concomitant]
     Dates: start: 19930601
  12. FERROUS SULFATE TAB [Concomitant]
     Dates: start: 19810101
  13. PAXIL [Concomitant]
     Dates: start: 19930601
  14. DEPAKOTE [Concomitant]
     Dates: start: 19981201
  15. PROLIXIN [Concomitant]
     Dates: start: 20050101
  16. COGENTIN [Concomitant]
     Dates: start: 19840101
  17. MULTI-VITAMIN [Concomitant]
     Dates: start: 19930901
  18. HYDROCHLOROTHIAZIDE [Concomitant]
     Dates: start: 19990528
  19. CELEBREX [Concomitant]
     Dates: start: 19990501
  20. LITHIUM CARBONATE [Concomitant]
     Dates: start: 20030101
  21. GLIPIZIDE [Concomitant]
     Dates: start: 20051101, end: 20060501
  22. LANTUS [Concomitant]
     Dates: start: 20051201, end: 20060126
  23. COLACE [Concomitant]
     Dates: start: 19990107

REACTIONS (39)
  - ABDOMINAL PAIN [None]
  - ABDOMINAL PAIN LOWER [None]
  - ABDOMINAL PAIN UPPER [None]
  - ANXIETY [None]
  - ANXIETY DISORDER [None]
  - BACK PAIN [None]
  - BLOOD TRIGLYCERIDES INCREASED [None]
  - CELLULITIS [None]
  - CERVIX DISORDER [None]
  - CHEST PAIN [None]
  - CONVULSION [None]
  - COUGH [None]
  - CYSTITIS [None]
  - DEPENDENT PERSONALITY DISORDER [None]
  - DIABETES MELLITUS [None]
  - DIABETES MELLITUS INADEQUATE CONTROL [None]
  - DRUG TOXICITY [None]
  - GASTRIC OPERATION [None]
  - GENITAL HAEMORRHAGE [None]
  - GINGIVAL PAIN [None]
  - HEADACHE [None]
  - HYPERGLYCAEMIA [None]
  - HYPOGLYCAEMIA [None]
  - MENTAL DISABILITY [None]
  - MUSCULOSKELETAL PAIN [None]
  - MYALGIA [None]
  - NASAL CONGESTION [None]
  - PAIN IN EXTREMITY [None]
  - PERSONALITY DISORDER [None]
  - PIGMENTATION DISORDER [None]
  - POSTMENOPAUSAL HAEMORRHAGE [None]
  - PYREXIA [None]
  - SPEECH DISORDER [None]
  - TOOTHACHE [None]
  - URINARY TRACT INFECTION [None]
  - UTERINE LEIOMYOMA [None]
  - VAGINAL INFECTION [None]
  - VAGINAL LESION [None]
  - WEIGHT INCREASED [None]
